FAERS Safety Report 12316501 (Version 1)
Quarter: 2016Q2

REPORT INFORMATION
  Report Type: Spontaneous
  Country: CH (occurrence: CH)
  Receive Date: 20160429
  Receipt Date: 20160429
  Transmission Date: 20160815
  Serious: Yes (Life-Threatening)
  Sender: FDA-Public Use
  Company Number: CH-ROCHE-1748766

PATIENT
  Age: 85 Year
  Sex: Female

DRUGS (8)
  1. COSAAR [Suspect]
     Active Substance: LOSARTAN POTASSIUM
     Indication: PRODUCT USED FOR UNKNOWN INDICATION
     Route: 048
  2. CIPROFLOXACIN. [Suspect]
     Active Substance: CIPROFLOXACIN
     Indication: URINARY TRACT INFECTION
     Route: 042
     Dates: start: 20160114, end: 201601
  3. ASPIRIN CARDIO [Concomitant]
     Active Substance: ASPIRIN
     Route: 065
  4. TRADJENTA [Concomitant]
     Active Substance: LINAGLIPTIN
     Route: 065
  5. SORTIS [Concomitant]
     Active Substance: ATORVASTATIN
     Route: 065
  6. ROCEPHIN [Suspect]
     Active Substance: CEFTRIAXONE SODIUM
     Indication: URINARY TRACT INFECTION
     Route: 042
     Dates: start: 20160113, end: 20160114
  7. NOVOMIX [Concomitant]
     Active Substance: INSULIN ASPART
     Route: 065
  8. TOREM [Concomitant]
     Active Substance: TORSEMIDE
     Route: 065

REACTIONS (2)
  - Epilepsy [Recovered/Resolved]
  - Angioedema [Recovered/Resolved]

NARRATIVE: CASE EVENT DATE: 20160114
